FAERS Safety Report 10912976 (Version 1)
Quarter: 2015Q1

REPORT INFORMATION
  Report Type: Spontaneous
  Country: US (occurrence: US)
  Receive Date: 20150313
  Receipt Date: 20150313
  Transmission Date: 20150721
  Serious: Yes (Other)
  Sender: FDA-Public Use
  Company Number: US-BAUSCH-BL-2015-003953

PATIENT
  Sex: Female

DRUGS (4)
  1. TOPAMAX [Suspect]
     Active Substance: TOPIRAMATE
     Indication: POST-TRAUMATIC STRESS DISORDER
  2. ATIVAN [Suspect]
     Active Substance: LORAZEPAM
     Indication: POST-TRAUMATIC STRESS DISORDER
     Route: 065
  3. PHENOBARBITAL. [Suspect]
     Active Substance: PHENOBARBITAL
     Indication: POST-TRAUMATIC STRESS DISORDER
  4. KEPPRA [Suspect]
     Active Substance: LEVETIRACETAM
     Indication: POST-TRAUMATIC STRESS DISORDER

REACTIONS (7)
  - Seizure [Unknown]
  - Borderline personality disorder [Unknown]
  - Anxiety disorder [Unknown]
  - Intracranial aneurysm [Unknown]
  - Intentional overdose [Unknown]
  - Confusional state [Unknown]
  - Sleep disorder [Unknown]
